FAERS Safety Report 16011051 (Version 1)
Quarter: 2019Q1

REPORT INFORMATION
  Report Type: Spontaneous
  Country: NL (occurrence: NL)
  Receive Date: 20190227
  Receipt Date: 20190227
  Transmission Date: 20190418
  Serious: Yes (Life-Threatening, Hospitalization)
  Sender: FDA-Public Use
  Company Number: NL-ACCORD-109594

PATIENT
  Age: 45 Year
  Sex: Female
  Weight: 85 kg

DRUGS (12)
  1. PREDNISOLONE. [Concomitant]
     Active Substance: PREDNISOLONE
     Dosage: NEEM 1 TABLET IN VIA DE MOND DAGELIJKS
  2. GLYCERYL TRINITRATE [Concomitant]
     Active Substance: NITROGLYCERIN
  3. HYDROCORTISONE. [Concomitant]
     Active Substance: HYDROCORTISONE
     Dosage: BRENG 1 G IN VIA DE ANUS 2 KEER PER DAG.
  4. FERROFUMARAAT [Concomitant]
     Dosage: NEEM 200 MG IN VIA DE MOND DAGELIJKS
  5. MIRTAZAPINE. [Concomitant]
     Active Substance: MIRTAZAPINE
     Dosage: TAKE 7.5 MG BY MOUTH DAILY
  6. VASELINE PURE [Concomitant]
     Active Substance: PETROLATUM
     Dosage: BRENG  AAN OP DE HUID VOLGENS TOEDIENINGSINSTRUCTIES
  7. ISOSORBIDEDINITRAAT [Concomitant]
     Dosage: BRENG 1 MG IN VIA DE ANUS 5 KEER PER DAG
  8. FOLIC ACID. [Concomitant]
     Active Substance: FOLIC ACID
     Dosage: NEEM 0,5 MG IN VIA DE MOND DAGELIJKS
  9. LORAZEPAM. [Concomitant]
     Active Substance: LORAZEPAM
     Dosage: NEEM 1 MG IN VIA DE MOND 3 KEER PER DAG OM 8-14-20 UUR
  10. OLMESARTAN/OLMESARTAN MEDOXOMIL [Suspect]
     Active Substance: OLMESARTAN MEDOXOMIL
     Indication: HYPERTENSION
     Dosage: 1X PER DAY
     Dates: start: 20180613, end: 20180714
  11. COLECALCIFEROL [Concomitant]
     Active Substance: CHOLECALCIFEROL
     Dosage: NEEM 25.000 INT EENHEDEN IN VIA DE MOND 1 X PER WEEK
  12. ROSUVASTATIN/ROSUVASTATIN CALCIUM [Concomitant]
     Dosage: NEEM 40 MG IN VIA DE MOND DAGELIJKS

REACTIONS (2)
  - Rash [Recovering/Resolving]
  - Renal tubular necrosis [Recovering/Resolving]

NARRATIVE: CASE EVENT DATE: 20180701
